FAERS Safety Report 16111511 (Version 1)
Quarter: 2019Q1

REPORT INFORMATION
  Report Type: Spontaneous
  Country: US (occurrence: US)
  Receive Date: 20190325
  Receipt Date: 20190325
  Transmission Date: 20190418
  Serious: No
  Sender: FDA-Public Use
  Company Number: US-BAYER-2019-054002

PATIENT
  Age: 64 Year
  Sex: Male
  Weight: 104 kg

DRUGS (1)
  1. ALEVE BACK AND MUSCLE PAIN [Suspect]
     Active Substance: NAPROXEN SODIUM
     Dosage: 1 DF
     Route: 048

REACTIONS (1)
  - Drug ineffective [Unknown]
